FAERS Safety Report 7927679-1 (Version None)
Quarter: 2011Q4

REPORT INFORMATION
  Report Type: 
  Country: None (occurrence: None)
  Receive Date: 20111117
  Receipt Date: 20111117
  Transmission Date: 20120403
  Serious: Yes (Other)
  Sender: FDA-Public Use
  Company Number: None

PATIENT

DRUGS (3)
  1. VICODIN [Suspect]
  2. ADDERALL XR 30 [Suspect]
     Dosage: TABLET EXTENDED RELEASE, ORAL 30 MG
     Route: 048
  3. ADDERALL XR 20 [Suspect]
     Dosage: TABLET, EXTENDED RELEASE ORAL
     Route: 048

REACTIONS (2)
  - DRUG DISPENSING ERROR [None]
  - MEDICATION ERROR [None]
